FAERS Safety Report 7530399-9 (Version None)
Quarter: 2011Q2

REPORT INFORMATION
  Report Type: 
  Country: None (occurrence: None)
  Receive Date: 20110607
  Receipt Date: 20110525
  Transmission Date: 20111010
  Serious: Yes (Hospitalization, Disabling, Other)
  Sender: FDA-Public Use
  Company Number: US-ELI_LILLY_AND_COMPANY-US201105008115

PATIENT
  Age: 53 Year
  Sex: Female

DRUGS (4)
  1. NARDIL [Concomitant]
  2. CLONAZEPAM [Concomitant]
  3. CYMBALTA [Suspect]
     Indication: DEPRESSION
     Dosage: UNK, UNKNOWN
     Dates: start: 20100523, end: 20100523
  4. NORCO [Concomitant]
     Indication: PAIN

REACTIONS (4)
  - COMA [None]
  - RESTLESS LEGS SYNDROME [None]
  - PARANOIA [None]
  - PAIN [None]
